FAERS Safety Report 14034002 (Version 1)
Quarter: 2017Q4

REPORT INFORMATION
  Report Type: Spontaneous
  Country: FR (occurrence: FR)
  Receive Date: 20171003
  Receipt Date: 20171003
  Transmission Date: 20180321
  Serious: Yes (Other)
  Sender: FDA-Public Use
  Company Number: FR-MERCK KGAA-2028327

PATIENT
  Age: 46 Year
  Sex: Female

DRUGS (1)
  1. NOVOTHYROX [Suspect]
     Active Substance: LEVOTHYROXINE SODIUM
     Indication: AUTOIMMUNE THYROIDITIS
     Route: 048
     Dates: start: 20170401

REACTIONS (7)
  - Gastrointestinal pain [Unknown]
  - Memory impairment [Unknown]
  - Fatigue [Unknown]
  - Abdominal distension [Unknown]
  - Weight increased [Unknown]
  - Disturbance in attention [Unknown]
  - Ocular discomfort [Unknown]

NARRATIVE: CASE EVENT DATE: 201704
